FAERS Safety Report 6403088-1 (Version None)
Quarter: 2009Q4

REPORT INFORMATION
  Report Type: 
  Country: None (occurrence: None)
  Receive Date: 20091016
  Receipt Date: 20091005
  Transmission Date: 20100525
  Serious: Yes (Hospitalization, Other)
  Sender: FDA-Public Use
  Company Number: PHHY2009JP41698

PATIENT
  Age: 61 Year
  Sex: Male

DRUGS (2)
  1. CYCLOSPORINE [Suspect]
     Indication: LUPUS NEPHRITIS
     Dosage: UNK
     Dates: start: 20080901
  2. PREDNISOLONE [Suspect]
     Indication: SYSTEMIC LUPUS ERYTHEMATOSUS
     Dosage: 40 MG PER DAY
     Dates: end: 20080901

REACTIONS (3)
  - CYTOMEGALOVIRUS INFECTION [None]
  - LOW DENSITY LIPOPROTEIN APHERESIS [None]
  - NEPHROTIC SYNDROME [None]
